FAERS Safety Report 8288691-9 (Version None)
Quarter: 2012Q2

REPORT INFORMATION
  Report Type: 
  Country: None (occurrence: None)
  Receive Date: 20120417
  Receipt Date: 20120406
  Transmission Date: 20120825
  Serious: Yes (Hospitalization)
  Sender: FDA-Public Use
  Company Number: US-BIOGENIDEC-130249

PATIENT
  Age: 50 Year
  Sex: Female

DRUGS (9)
  1. AVONEX [Suspect]
     Indication: MULTIPLE SCLEROSIS
     Route: 030
     Dates: start: 19981001, end: 19990901
  2. AVONEX [Suspect]
     Route: 030
     Dates: start: 20090829
  3. REBIF [Concomitant]
     Indication: MULTIPLE SCLEROSIS
  4. AMPYRA [Concomitant]
  5. AVONEX [Suspect]
     Route: 030
     Dates: start: 20070501, end: 20070903
  6. AMPYRA [Concomitant]
     Indication: GAIT DISTURBANCE
  7. AVONEX [Suspect]
     Route: 030
     Dates: start: 20080108, end: 20090801
  8. TYLENOL (CAPLET) [Concomitant]
     Indication: PREMEDICATION
  9. AVONEX [Suspect]
     Route: 030
     Dates: start: 20000810, end: 20010214

REACTIONS (10)
  - HAEMATOCRIT DECREASED [None]
  - TRIGEMINAL NEURALGIA [None]
  - BLOOD TEST ABNORMAL [None]
  - THROMBOSIS [None]
  - RED BLOOD CELL COUNT DECREASED [None]
  - COLITIS ISCHAEMIC [None]
  - WHITE BLOOD CELL COUNT DECREASED [None]
  - INFLUENZA LIKE ILLNESS [None]
  - OSTEOPOROSIS [None]
  - COLONIC STENOSIS [None]
